FAERS Safety Report 20154420 (Version 2)
Quarter: 2022Q3

REPORT INFORMATION
  Report Type: Spontaneous
  Country: CL (occurrence: CL)
  Receive Date: 20211207
  Receipt Date: 20220712
  Transmission Date: 20221026
  Serious: Yes (Other)
  Sender: FDA-Public Use
  Company Number: CL-GLAXOSMITHKLINE-CL2021AMR247904

PATIENT

DRUGS (1)
  1. BENLYSTA [Suspect]
     Active Substance: BELIMUMAB
     Indication: Systemic lupus erythematosus
     Dosage: UNK
     Dates: start: 20200701, end: 20200901

REACTIONS (1)
  - Thyroid cancer [Recovered/Resolved]

NARRATIVE: CASE EVENT DATE: 20200901
